FAERS Safety Report 8344699-6 (Version None)
Quarter: 2012Q2

REPORT INFORMATION
  Report Type: 
  Country: None (occurrence: None)
  Receive Date: 20120508
  Receipt Date: 20120501
  Transmission Date: 20120825
  Serious: Yes (Other)
  Sender: FDA-Public Use
  Company Number: AU-ABBOTT-12P-008-0929615-00

PATIENT

DRUGS (4)
  1. PREDNISOLONE [Concomitant]
     Indication: PRODUCT USED FOR UNKNOWN INDICATION
  2. HUMIRA [Suspect]
     Indication: PSORIATIC ARTHROPATHY
  3. HUMIRA [Suspect]
  4. METHOTREXATE [Concomitant]
     Indication: PRODUCT USED FOR UNKNOWN INDICATION

REACTIONS (4)
  - MYALGIA [None]
  - PAIN IN EXTREMITY [None]
  - PYREXIA [None]
  - NUCLEAR MAGNETIC RESONANCE IMAGING ABNORMAL [None]
